FAERS Safety Report 7782140-2 (Version None)
Quarter: 2011Q3

REPORT INFORMATION
  Report Type: 
  Country: None (occurrence: None)
  Receive Date: 20110927
  Receipt Date: 20110919
  Transmission Date: 20111222
  Serious: Yes (Other)
  Sender: FDA-Public Use
  Company Number: US-ASTRAZENECA-2011SE46690

PATIENT
  Age: 61 Year
  Sex: Female

DRUGS (3)
  1. NEXIUM [Suspect]
     Route: 048
  2. CRESTOR [Suspect]
     Route: 048
  3. SEROQUEL [Suspect]
     Indication: SLEEP DISORDER
     Dosage: 25 MG ONE TO THREE TABLETS DAILY
     Route: 048

REACTIONS (16)
  - DISTURBANCE IN ATTENTION [None]
  - CHOKING [None]
  - MALAISE [None]
  - PAIN IN EXTREMITY [None]
  - OFF LABEL USE [None]
  - MEMORY IMPAIRMENT [None]
  - CHEST PAIN [None]
  - DYSPNOEA [None]
  - DRUG DOSE OMISSION [None]
  - COGNITIVE DISORDER [None]
  - DEMENTIA [None]
  - CONFUSIONAL STATE [None]
  - DEPRESSION [None]
  - APPENDICITIS PERFORATED [None]
  - DYSPEPSIA [None]
  - ANGINA PECTORIS [None]
